FAERS Safety Report 10832112 (Version 2)
Quarter: 2015Q2

REPORT INFORMATION
  Report Type: Spontaneous
  Country: IT (occurrence: IT)
  Receive Date: 20150219
  Receipt Date: 20150505
  Transmission Date: 20150821
  Serious: Yes (Hospitalization)
  Sender: FDA-Public Use
  Company Number: PHHY2015IT010884

PATIENT
  Age: 31 Year
  Sex: Female
  Weight: 51 kg

DRUGS (1)
  1. EXJADE [Suspect]
     Active Substance: DEFERASIROX
     Indication: THALASSAEMIA BETA
     Dosage: 38 MG/KG, UNK
     Route: 065
     Dates: start: 20130918, end: 20150116

REACTIONS (14)
  - Proteinuria [Unknown]
  - Tooth abscess [Unknown]
  - Renal tubular disorder [Unknown]
  - Myalgia [Recovered/Resolved]
  - Hypokalaemia [Unknown]
  - Hyperchloraemia [Unknown]
  - Gastritis erosive [Unknown]
  - Dyspepsia [Not Recovered/Not Resolved]
  - Glomerular filtration rate decreased [Unknown]
  - Metabolic acidosis [Unknown]
  - Nausea [Recovered/Resolved]
  - Blood creatinine increased [Recovered/Resolved]
  - Asthenia [Recovered/Resolved]
  - Haemoglobin decreased [Recovered/Resolved]

NARRATIVE: CASE EVENT DATE: 20140512
